FAERS Safety Report 19019948 (Version 1)
Quarter: 2021Q1

REPORT INFORMATION
  Report Type: Spontaneous
  Country: FR (occurrence: FR)
  Receive Date: 20210317
  Receipt Date: 20210317
  Transmission Date: 20210420
  Serious: Yes (Hospitalization)
  Sender: FDA-Public Use
  Company Number: FR-009507513-2103FRA002141

PATIENT
  Age: 38 Year
  Sex: Male
  Weight: 39 kg

DRUGS (13)
  1. CERTICAN [Suspect]
     Active Substance: EVEROLIMUS
     Indication: IMMUNOSUPPRESSION
     Dosage: 2 DOSAGE FORM, QD
     Route: 048
  2. KEPPRA [Concomitant]
     Active Substance: LEVETIRACETAM
     Route: 048
  3. CIFLOX (CIPROFLOXACIN HYDROCHLORIDE) [Suspect]
     Active Substance: CIPROFLOXACIN HYDROCHLORIDE
     Indication: PYELONEPHRITIS
     Dosage: NON CONNUE
     Route: 048
     Dates: start: 20201121
  4. TAZOCILLINE [Suspect]
     Active Substance: PIPERACILLIN SODIUM\TAZOBACTAM SODIUM
     Indication: PYELONEPHRITIS
     Dosage: 12 GRAM QD
     Route: 042
     Dates: start: 20201121, end: 20201206
  5. NOVORAPID [Concomitant]
     Active Substance: INSULIN ASPART
     Route: 042
  6. CHOLURSO [Concomitant]
     Active Substance: URSODIOL
     Route: 048
  7. BICARBONATE DE SODIUM BIOSEDRA [Concomitant]
     Route: 048
  8. CASPOFUNGIN ACETATE. [Suspect]
     Active Substance: CASPOFUNGIN ACETATE
     Indication: PYELONEPHRITIS
     Dosage: SEE COMMENT
     Route: 042
     Dates: start: 20201126, end: 20201204
  9. ADVAGRAF [Suspect]
     Active Substance: TACROLIMUS
     Indication: IMMUNOSUPPRESSION
     Dosage: 2 MILLIGRAM, QD
     Route: 048
  10. FLUCONAZOLE. [Suspect]
     Active Substance: FLUCONAZOLE
     Indication: PYELONEPHRITIS
     Dosage: 400 MG/DAY FROM 24 NOV TO 26 NOV THEN FROM 04 DEC
     Route: 048
     Dates: start: 20201124
  11. CORTANCYL [Concomitant]
     Active Substance: PREDNISONE
     Route: 048
  12. CALTRATE [Concomitant]
     Active Substance: CALCIUM CARBONATE
     Route: 048
  13. ALFACALCIDOL [Concomitant]
     Active Substance: ALFACALCIDOL
     Route: 048

REACTIONS (2)
  - Transaminases increased [Recovering/Resolving]
  - Gamma-glutamyltransferase increased [Recovering/Resolving]

NARRATIVE: CASE EVENT DATE: 20201204
